FAERS Safety Report 8972418 (Version 1)
Quarter: 2012Q4

REPORT INFORMATION
  Report Type: 
  Country: FR (occurrence: FR)
  Receive Date: 20121219
  Receipt Date: 20121219
  Transmission Date: 20130627
  Serious: Yes (Hospitalization)
  Sender: FDA-Public Use
  Company Number: FR-PFIZER INC-2012311148

PATIENT
  Age: 87 Year
  Sex: Male

DRUGS (10)
  1. ADRIBLASTINE [Suspect]
     Indication: CHEMOEMBOLIZATION
     Dosage: 92 mg, single
     Route: 013
     Dates: start: 20121017
  2. ETHIODIZED OIL [Suspect]
     Indication: CHEMOEMBOLIZATION
     Dosage: 20 ml, single
     Route: 013
     Dates: start: 20121017
  3. ALDACTONE [Concomitant]
     Dosage: 50 mg, 1x/day
  4. AMLOR [Concomitant]
     Dosage: 10 mg, 1x/day
  5. CRESTOR [Concomitant]
     Dosage: 5 mg, 1x/day
  6. DUPHALAC [Concomitant]
     Dosage: 2 sachet, 1x/day
  7. INEXIUM [Concomitant]
     Dosage: 20 mg, 1x/day
  8. PARACETAMOL [Concomitant]
     Dosage: 500 mg, 3x/day
  9. SERESTA [Concomitant]
     Dosage: 10 mg, 1x/day
  10. VENLAFAXINE [Concomitant]
     Dosage: 37.5 mg, 1x/day

REACTIONS (3)
  - Wrong drug administered [Recovering/Resolving]
  - Hepatocellular injury [Recovering/Resolving]
  - Cholecystitis [Recovering/Resolving]
